FAERS Safety Report 5366496-6 (Version None)
Quarter: 2007Q2

REPORT INFORMATION
  Report Type: 
  Country: None (occurrence: None)
  Receive Date: 20070622
  Receipt Date: 20070612
  Transmission Date: 20071010
  Serious: Yes (Other)
  Sender: FDA-Public Use
  Company Number: NL-JNJFOC-20070602929

PATIENT
  Sex: Female

DRUGS (2)
  1. TOPAMAX [Suspect]
     Indication: EPILEPSY
     Route: 048
  2. CYPROTERON/ETHINYLESTRADIOL [Interacting]
     Indication: CONTRACEPTION
     Route: 048

REACTIONS (5)
  - DISTURBANCE IN ATTENTION [None]
  - DRUG INTERACTION [None]
  - EPILEPSY [None]
  - FATIGUE [None]
  - SLEEP DISORDER [None]
